FAERS Safety Report 7490769-4 (Version None)
Quarter: 2011Q2

REPORT INFORMATION
  Report Type: 
  Country: None (occurrence: None)
  Receive Date: 20110519
  Receipt Date: 20110505
  Transmission Date: 20111010
  Serious: Yes (Hospitalization, Other)
  Sender: FDA-Public Use
  Company Number: US-BAYER-200916063NA

PATIENT
  Age: 64 Year
  Sex: Male
  Weight: 97.052 kg

DRUGS (11)
  1. NITROGLYCERIN [Concomitant]
     Dosage: UNK
     Dates: start: 20001009, end: 20001009
  2. GENTAMYCIN SULFATE [Concomitant]
     Dosage: 80 MG, UNK
     Route: 042
     Dates: start: 20001009, end: 20001009
  3. FENTANYL [Concomitant]
     Dosage: UNK
     Dates: start: 20001009, end: 20001009
  4. PAVULON [Concomitant]
     Indication: AORTIC VALVE REPLACEMENT
     Dosage: 13 MG, UNK
     Route: 042
     Dates: start: 20001009, end: 20001009
  5. HEPARIN [Concomitant]
     Dosage: 500 MG, UNK
     Route: 042
     Dates: start: 20001009, end: 20001009
  6. TRASYLOL [Suspect]
     Indication: AORTIC VALVE REPLACEMENT
     Dosage: TEST DOSE 1 MK
     Dates: start: 20001009
  7. VERSED [Concomitant]
     Dosage: 5 MG, UNK
     Route: 042
     Dates: start: 20001009, end: 20001009
  8. ACCUPRIL [Concomitant]
     Dosage: 20 MG, QD
     Dates: start: 20000823
  9. TENORMIN [Concomitant]
     Dosage: 50 MG, QD
     Route: 048
     Dates: start: 20000731
  10. PLAVIX [Concomitant]
     Dosage: 75 MG, QD
     Route: 048
     Dates: start: 20000801
  11. VANCOMYCIN [Concomitant]
     Dosage: 500 MG, UNK
     Route: 042
     Dates: start: 20001009, end: 20001009

REACTIONS (13)
  - MYOCARDIAL INFARCTION [None]
  - FEAR [None]
  - PAIN [None]
  - ANHEDONIA [None]
  - RENAL IMPAIRMENT [None]
  - MULTI-ORGAN FAILURE [None]
  - RENAL INJURY [None]
  - EMOTIONAL DISTRESS [None]
  - ANXIETY [None]
  - INJURY [None]
  - UNEVALUABLE EVENT [None]
  - STRESS [None]
  - RENAL FAILURE [None]
